FAERS Safety Report 9271245 (Version 1)
Quarter: 2013Q2

REPORT INFORMATION
  Report Type: Spontaneous
  Country: US (occurrence: US)
  Receive Date: 20130506
  Receipt Date: 20130506
  Transmission Date: 20140414
  Serious: Yes (Other)
  Sender: FDA-Public Use
  Company Number: US-ELI_LILLY_AND_COMPANY-US201304007650

PATIENT
  Sex: Male

DRUGS (4)
  1. CYMBALTA [Suspect]
     Indication: DEPRESSION
     Dosage: 60 MG, UNKNOWN
  2. TRAZODONE [Concomitant]
     Dosage: UNK, UNKNOWN
  3. REMERON [Concomitant]
     Dosage: UNK, UNKNOWN
  4. RISPERDAL [Concomitant]
     Dosage: UNK, UNKNOWN

REACTIONS (2)
  - Prostate cancer [Unknown]
  - Suicidal ideation [Unknown]
